FAERS Safety Report 21651108 (Version 2)
Quarter: 2022Q4

REPORT INFORMATION
  Report Type: Spontaneous
  Country: US (occurrence: US)
  Receive Date: 20221128
  Receipt Date: 20221221
  Transmission Date: 20230113
  Serious: No
  Sender: FDA-Public Use
  Company Number: US-PFIZER INC-PV202200110335

PATIENT
  Age: 70 Year
  Sex: Male
  Weight: 58.957 kg

DRUGS (1)
  1. LORBRENA [Suspect]
     Active Substance: LORLATINIB
     Indication: Hepatic cancer
     Dosage: 100 MG, 1X/DAY
     Dates: start: 20221117

REACTIONS (2)
  - General physical health deterioration [Recovered/Resolved]
  - Off label use [Unknown]
